FAERS Safety Report 14930387 (Version 1)
Quarter: 2018Q2

REPORT INFORMATION
  Report Type: Report from Study
  Country: CN (occurrence: CN)
  Receive Date: 20180523
  Receipt Date: 20180523
  Transmission Date: 20180711
  Serious: Yes (Hospitalization, Other)
  Sender: FDA-Public Use
  Company Number: CN-GILEAD-2018-0339772

PATIENT
  Age: 22 Year
  Sex: Male

DRUGS (1)
  1. ADEFOVIR DIPIVOXIL. [Suspect]
     Active Substance: ADEFOVIR DIPIVOXIL
     Indication: CHRONIC HEPATITIS B
     Dosage: 10 MG, QD
     Route: 065

REACTIONS (3)
  - Hypophosphataemia [Recovered/Resolved]
  - Osteomalacia [Recovered/Resolved]
  - Fanconi syndrome acquired [Recovered/Resolved]
